FAERS Safety Report 7491786-0 (Version None)
Quarter: 2011Q2

REPORT INFORMATION
  Report Type: 
  Country: None (occurrence: None)
  Receive Date: 20110519
  Receipt Date: 20110516
  Transmission Date: 20111010
  Serious: Yes (Hospitalization, Other)
  Sender: FDA-Public Use
  Company Number: US-TEVA-282101USA

PATIENT
  Age: 62 Year
  Sex: Female

DRUGS (4)
  1. SUCCINYLCHOLINE CHLORIDE [Suspect]
  2. ONDANSETRON [Suspect]
  3. NORTRIPTYLINE HYDROCHLORIDE [Suspect]
  4. ESCITALOPRAM [Concomitant]

REACTIONS (3)
  - LONG QT SYNDROME [None]
  - CARDIAC ARREST [None]
  - VENTRICULAR TACHYCARDIA [None]
